FAERS Safety Report 9486489 (Version 1)
Quarter: 2013Q3

REPORT INFORMATION
  Report Type: Spontaneous
  Country: FR (occurrence: FR)
  Receive Date: 20130829
  Receipt Date: 20130829
  Transmission Date: 20140515
  Serious: Yes (Hospitalization)
  Sender: FDA-Public Use
  Company Number: FR-SANOFI-AVENTIS-2013SA084472

PATIENT
  Age: 59 Year
  Sex: Male
  Weight: 79 kg

DRUGS (3)
  1. RIFADINE [Suspect]
     Indication: STAPHYLOCOCCAL SEPSIS
     Route: 042
     Dates: start: 20130729, end: 20130802
  2. BRISTOPEN [Concomitant]
  3. HEPARIN [Concomitant]
     Dates: end: 20130801

REACTIONS (2)
  - Cholestasis [Recovering/Resolving]
  - Thrombocytopenia [Recovered/Resolved]
